FAERS Safety Report 19263336 (Version 1)
Quarter: 2021Q2

REPORT INFORMATION
  Report Type: Spontaneous
  Country: RO (occurrence: RO)
  Receive Date: 20210517
  Receipt Date: 20210517
  Transmission Date: 20210717
  Serious: Yes (Hospitalization)
  Sender: FDA-Public Use
  Company Number: RO-BIOGEN-2021BI01010630

PATIENT
  Age: 25 Year
  Sex: Female
  Weight: 27 kg

DRUGS (1)
  1. SPINRAZA [Suspect]
     Active Substance: NUSINERSEN
     Indication: SPINAL MUSCULAR ATROPHY
     Dosage: 1 VIAL ADMINISTERED INTRATHECALLY ON DAY 1, 14, 28 AND 63, THEN 1 VIAL EVERY 4 MONTHS
     Route: 037
     Dates: start: 20200219, end: 20201222

REACTIONS (6)
  - Nausea [Recovered/Resolved]
  - Headache [Recovered/Resolved]
  - Vomiting [Recovered/Resolved]
  - Hypotension [Recovered/Resolved]
  - Vertigo [Recovered/Resolved]
  - Presyncope [Recovered/Resolved]

NARRATIVE: CASE EVENT DATE: 20201222
